FAERS Safety Report 9320868 (Version 2)
Quarter: 2013Q3

REPORT INFORMATION
  Report Type: Spontaneous
  Country: US (occurrence: US)
  Receive Date: 20130531
  Receipt Date: 20130711
  Transmission Date: 20140515
  Serious: No
  Sender: FDA-Public Use
  Company Number: US-BIOGENIDEC-2013BI047996

PATIENT
  Sex: Female

DRUGS (9)
  1. AVONEX [Suspect]
     Indication: MULTIPLE SCLEROSIS
     Route: 030
     Dates: start: 20001003
  2. AVONEX [Suspect]
     Indication: MULTIPLE SCLEROSIS
     Route: 030
     Dates: start: 20010101
  3. AVONEX [Suspect]
     Indication: MULTIPLE SCLEROSIS
     Route: 030
     Dates: start: 20111222
  4. AVONEX [Suspect]
     Indication: MULTIPLE SCLEROSIS
     Route: 030
     Dates: start: 20130117
  5. NERVE PILLS (NOS) [Concomitant]
     Indication: ANXIETY
  6. MEMORY PILLS (NOS) [Concomitant]
     Indication: MEMORY IMPAIRMENT
  7. PERCOCET [Concomitant]
     Indication: ARTHRALGIA
  8. SLEEP-EZE [Concomitant]
     Indication: INSOMNIA
  9. NAMENDA [Concomitant]
     Indication: MEMORY IMPAIRMENT
     Route: 048

REACTIONS (14)
  - Tremor [Not Recovered/Not Resolved]
  - Eyelid ptosis [Not Recovered/Not Resolved]
  - Fall [Recovered/Resolved]
  - Nervousness [Recovered/Resolved]
  - Bone density decreased [Unknown]
  - Heart valve incompetence [Not Recovered/Not Resolved]
  - Abdominal pain upper [Recovered/Resolved]
  - Back pain [Not Recovered/Not Resolved]
  - Balance disorder [Not Recovered/Not Resolved]
  - Poor quality sleep [Not Recovered/Not Resolved]
  - Neuropathy peripheral [Not Recovered/Not Resolved]
  - Anger [Recovered/Resolved]
  - Dry eye [Not Recovered/Not Resolved]
  - Muscular weakness [Not Recovered/Not Resolved]
